FAERS Safety Report 24675364 (Version 3)
Quarter: 2025Q1

REPORT INFORMATION
  Report Type: Spontaneous
  Country: FR (occurrence: FR)
  Receive Date: 20241128
  Receipt Date: 20250130
  Transmission Date: 20250408
  Serious: No
  Sender: PFIZER
  Company Number: FR-PFIZER INC-PV202400153170

PATIENT
  Age: 13 Year
  Sex: Male

DRUGS (1)
  1. NGENLA [Suspect]
     Active Substance: SOMATROGON-GHLA
     Route: 058

REACTIONS (2)
  - Injection site pain [Recovered/Resolved]
  - Injection site mass [Recovered/Resolved]
